FAERS Safety Report 8854824 (Version 2)
Quarter: 2012Q4

REPORT INFORMATION
  Report Type: 
  Country: FR (occurrence: FR)
  Receive Date: 20121023
  Receipt Date: 20121026
  Transmission Date: 20130627
  Serious: Yes (Hospitalization, Other)
  Sender: FDA-Public Use
  Company Number: PHHY2012FR089133

PATIENT
  Age: 78 Year
  Sex: Female
  Weight: 80.6 kg

DRUGS (5)
  1. ACLASTA [Suspect]
     Dosage: 5 mg, UNK
     Route: 042
     Dates: start: 20120913
  2. TRIATEC [Concomitant]
     Dosage: 10 mg per daily
     Route: 048
  3. CRESTOR [Concomitant]
     Dosage: 5 mg per daily
     Route: 048
  4. JANUVIA [Concomitant]
     Dosage: 100 mg, daily
     Route: 048
  5. LASILIX [Concomitant]
     Dosage: 125 mg, daily
     Route: 048

REACTIONS (9)
  - Hyperhidrosis [Recovered/Resolved]
  - Malaise [Recovered/Resolved]
  - Dizziness [Recovered/Resolved]
  - Hyperparathyroidism [Recovered/Resolved]
  - Red blood cell sedimentation rate increased [Unknown]
  - C-reactive protein increased [Recovered/Resolved]
  - Blood creatinine increased [Unknown]
  - Hypophosphataemia [Recovered/Resolved]
  - Hypocalcaemia [Recovered/Resolved]
